FAERS Safety Report 5054208-5 (Version None)
Quarter: 2006Q3

REPORT INFORMATION
  Report Type: 
  Country: None (occurrence: None)
  Receive Date: 20060713
  Receipt Date: 20060629
  Transmission Date: 20061208
  Serious: Yes (Life-Threatening)
  Sender: FDA-Public Use
  Company Number: S05-SWI-03565-01

PATIENT
  Age: 59 Year
  Sex: Female
  Weight: 67 kg

DRUGS (7)
  1. CITALOPRAM HYDROBROMIDE [Suspect]
     Indication: DEPRESSION
     Dosage: 120 MG ONCE PO
     Route: 048
     Dates: start: 20050921, end: 20050921
  2. CITALOPRAM HYDROBROMIDE [Suspect]
     Indication: DEPRESSION
     Dosage: 60 MG QD PO
     Route: 048
     Dates: end: 20050920
  3. LITHIUM CARBONATE [Suspect]
     Indication: DEPRESSION
     Dosage: 4 TABLET QD PO
     Route: 048
     Dates: end: 20050920
  4. TRAZODONE HCL [Suspect]
     Indication: DEPRESSION
     Dosage: 200 MG QD PO
     Route: 048
     Dates: end: 20050920
  5. SURMONTIL [Suspect]
     Indication: DEPRESSION
     Dosage: 250  MG QD PO
     Route: 048
     Dates: end: 20050920
  6. RITALIN [Suspect]
     Indication: DEPRESSION
     Dates: end: 20050920
  7. VASERETIC [Concomitant]

REACTIONS (3)
  - ATRIOVENTRICULAR BLOCK THIRD DEGREE [None]
  - CARDIOVASCULAR DISORDER [None]
  - OVERDOSE [None]
